FAERS Safety Report 18380282 (Version 3)
Quarter: 2020Q4

REPORT INFORMATION
  Report Type: Spontaneous
  Country: US (occurrence: US)
  Receive Date: 20201014
  Receipt Date: 20201112
  Transmission Date: 20210114
  Serious: Yes (Hospitalization, Other)
  Sender: FDA-Public Use
  Company Number: US-ALK-ABELLO A/S-2020AA003101

PATIENT

DRUGS (33)
  1. TAE BULK 358 (RUMEX ACETOSELLA) [Suspect]
     Active Substance: RUMEX ACETOSELLA POLLEN
     Indication: PRODUCT USED FOR UNKNOWN INDICATION
     Dosage: UNK
     Route: 058
     Dates: start: 20180924, end: 20200924
  2. TAE BULK 367 (KOCHIA SCOPARIA) [Suspect]
     Active Substance: BASSIA SCOPARIA POLLEN
     Indication: PRODUCT USED FOR UNKNOWN INDICATION
     Dosage: UNK
     Route: 058
     Dates: start: 20180924, end: 20200924
  3. TAE BULK 1201 (ATRIPLEX WRIGHTII) [Suspect]
     Active Substance: ATRIPLEX WRIGHTII POLLEN
     Indication: PRODUCT USED FOR UNKNOWN INDICATION
     Dosage: UNK
     Route: 058
     Dates: start: 20180924, end: 20200924
  4. TAE BULK 239 SORGHUM HALEPENSE [Suspect]
     Active Substance: SORGHUM HALEPENSE POLLEN
     Indication: PRODUCT USED FOR UNKNOWN INDICATION
     Dosage: UNK
     Route: 058
     Dates: start: 20180924, end: 20200924
  5. TAE BULK 1282 (AGROSTIS GIGANTEA POLLEN\DACTYLIS GLOMERATA\FESTUCA PRATENSIS\LOLIUM PERENNE\PHLEUM PRATENSE\POA PRATENSIS) [Suspect]
     Active Substance: AGROSTIS GIGANTEA POLLEN\DACTYLIS GLOMERATA\FESTUCA PRATENSIS\LOLIUM PERENNE\PHLEUM PRATENSE\POA PRATENSIS
     Indication: PRODUCT USED FOR UNKNOWN INDICATION
     Dosage: UNK
     Route: 058
     Dates: start: 20180924, end: 20200924
  6. TAE BULK 402 (ALTERNARIA ALTERNATA) [Suspect]
     Active Substance: ALTERNARIA ALTERNATA
     Indication: PRODUCT USED FOR UNKNOWN INDICATION
     Dosage: UNK
     Route: 058
     Dates: start: 20180924, end: 20200924
  7. TAE BULK 438 (RHODOTORULA RUBRA) [Suspect]
     Active Substance: RHODOTORULA RUBRA
     Indication: PRODUCT USED FOR UNKNOWN INDICATION
     Dosage: UNK
     Route: 058
     Dates: start: 20180924, end: 20200924
  8. TAE BULK 153 (QUERCUS ALBA) [Suspect]
     Active Substance: QUERCUS ALBA POLLEN
     Indication: PRODUCT USED FOR UNKNOWN INDICATION
     Dosage: UNK
     Route: 058
     Dates: start: 20180924, end: 20200924
  9. TAE BULK 241 (BROMUS INERMIS) [Suspect]
     Active Substance: BROMUS INERMIS POLLEN
     Indication: PRODUCT USED FOR UNKNOWN INDICATION
     Dosage: UNK
     Route: 058
     Dates: start: 20180924, end: 20200924
  10. STAE BULK 503 (DERMATOPHAGOIDES PTERONYSSINUS) [Suspect]
     Active Substance: DERMATOPHAGOIDES PTERONYSSINUS
     Indication: PRODUCT USED FOR UNKNOWN INDICATION
     Dosage: UNK
     Route: 058
     Dates: start: 20180924, end: 20200924
  11. TAE BULK 822 (BLATTELLA GERMANICA) [Suspect]
     Active Substance: BLATTELLA GERMANICA
     Indication: PRODUCT USED FOR UNKNOWN INDICATION
     Dosage: UNK
     Route: 058
     Dates: start: 20180924, end: 20200924
  12. TAE BULK 170 (ACACIA LONGIFOLIA) [Suspect]
     Active Substance: ACACIA LONGIFOLIA POLLEN
     Indication: PRODUCT USED FOR UNKNOWN INDICATION
     Dosage: UNK
     Route: 058
     Dates: start: 20180924, end: 20200924
  13. TAE BULK 1169 [POPULUS DELTOIDES SUBSP. MONILIFERA POLLEN] [Suspect]
     Active Substance: POPULUS DELTOIDES SUBSP. MONILIFERA POLLEN
     Indication: PRODUCT USED FOR UNKNOWN INDICATION
     Dosage: UNK
     Route: 058
     Dates: start: 20180924, end: 20200924
  14. TAE BULK 342 (PLANTAGO LANCEOLATA) [Suspect]
     Active Substance: PLANTAGO LANCEOLATA POLLEN
     Indication: PRODUCT USED FOR UNKNOWN INDICATION
     Dosage: UNK
     Route: 058
     Dates: start: 20180924, end: 20200924
  15. STAE BULK 504 (DERMATOPHAGOIDES FARINAE) [Suspect]
     Active Substance: DERMATOPHAGOIDES FARINAE
     Indication: PRODUCT USED FOR UNKNOWN INDICATION
     Dosage: UNK
     Route: 058
     Dates: start: 20180924, end: 20200924
  16. TAE BULK 405 (ASPERGILLUS FUMIGATUS) [Suspect]
     Active Substance: ASPERGILLUS FUMIGATUS
     Indication: PRODUCT USED FOR UNKNOWN INDICATION
     Dosage: UNK
     Route: 058
     Dates: start: 20180924, end: 20200924
  17. TAE BULK 108 (BETULA VERRUCOSA PENDULA) [Suspect]
     Active Substance: BETULA PENDULA POLLEN
     Indication: PRODUCT USED FOR UNKNOWN INDICATION
     Dosage: UNK
     Route: 058
     Dates: start: 20180924, end: 20200924
  18. TAE BULK 1255 (ALNUS RUGOSA) [Suspect]
     Active Substance: ALNUS INCANA SUBSP. RUGOSA POLLEN
     Indication: PRODUCT USED FOR UNKNOWN INDICATION
     Dosage: UNK
     Route: 058
     Dates: start: 20180924, end: 20200924
  19. TAE BULK 1166 PLATANUS OCCIDENTALIS [Suspect]
     Active Substance: PLATANUS OCCIDENTALIS POLLEN
     Indication: PRODUCT USED FOR UNKNOWN INDICATION
     Dosage: UNK
     Route: 058
     Dates: start: 20180924, end: 20200924
  20. TAE BULK 1153 (JUNIPERUS CALIFORNICA) [Suspect]
     Active Substance: JUNIPERUS CALIFORNICA POLLEN
     Indication: PRODUCT USED FOR UNKNOWN INDICATION
     Dosage: UNK
     Route: 058
     Dates: start: 20180924, end: 20200924
  21. TAE BULK 156 (ULMUS AMERICANA) [Suspect]
     Active Substance: ULMUS AMERICANA POLLEN
     Indication: PRODUCT USED FOR UNKNOWN INDICATION
     Dosage: UNK
     Route: 058
     Dates: start: 20180924, end: 20200924
  22. STAE BULK 238 (CYNODON DACTYLON) [Suspect]
     Active Substance: CYNODON DACTYLON POLLEN
     Indication: PRODUCT USED FOR UNKNOWN INDICATION
     Dosage: UNK
     Route: 058
     Dates: start: 20180924, end: 20200924
  23. TAE BULK 556 (BOS TAURUS) [Suspect]
     Active Substance: BOS TAURUS SKIN
     Indication: PRODUCT USED FOR UNKNOWN INDICATION
     Dosage: UNK
     Route: 058
     Dates: start: 20180924, end: 20200924
  24. TAE BULK 1327 (MUCOR PLUMBUS) [Suspect]
     Active Substance: MUCOR PLUMBEUS
     Indication: PRODUCT USED FOR UNKNOWN INDICATION
     Dosage: UNK
     Route: 058
     Dates: start: 20180924, end: 20200924
  25. TAE BULK 157 ACER NEGUNDO [Suspect]
     Active Substance: ACER NEGUNDO POLLEN
     Indication: PRODUCT USED FOR UNKNOWN INDICATION
     Dosage: UNK
     Route: 058
     Dates: start: 20180924, end: 20200924
  26. TAE BULK 1161 MORUS RUBRA [Suspect]
     Active Substance: MORUS RUBRA POLLEN
     Indication: PRODUCT USED FOR UNKNOWN INDICATION
     Dosage: UNK
     Route: 058
     Dates: start: 20180924, end: 20200924
  27. TAE BULK 1151 (JUGLANS NIGRA) [Suspect]
     Active Substance: JUGLANS NIGRA POLLEN
     Indication: PRODUCT USED FOR UNKNOWN INDICATION
     Dosage: UNK
     Route: 058
     Dates: start: 20180924, end: 20200924
  28. TAE BULK 322 CHENOPODIUM ALBUM [Suspect]
     Active Substance: CHENOPODIUM ALBUM POLLEN
     Indication: PRODUCT USED FOR UNKNOWN INDICATION
     Dosage: UNK
     Route: 058
     Dates: start: 20180924, end: 20200924
  29. TAE BULK 154 (OLEA EUROPAEA) [Suspect]
     Active Substance: OLEA EUROPAEA POLLEN
     Indication: PRODUCT USED FOR UNKNOWN INDICATION
     Dosage: UNK
     Route: 058
     Dates: start: 20180924, end: 20200924
  30. TAE BULK 168 FRAXINUS AMERICANA [Suspect]
     Active Substance: FRAXINUS AMERICANA POLLEN
     Indication: PRODUCT USED FOR UNKNOWN INDICATION
     Dosage: UNK
     Route: 058
     Dates: start: 20180924, end: 20200924
  31. TAE BULK 362 AMARANTHUS RETROFLEXUS [Suspect]
     Active Substance: AMARANTHUS RETROFLEXUS POLLEN
     Indication: PRODUCT USED FOR UNKNOWN INDICATION
     Dosage: UNK
     Route: 058
     Dates: start: 20180924, end: 20200924
  32. TAE BULK 1020 (CLADOSPORIUM FULVUM) [Suspect]
     Active Substance: PASSALORA FULVA
     Indication: PRODUCT USED FOR UNKNOWN INDICATION
     Dosage: UNK
     Route: 058
     Dates: start: 20180924, end: 20200924
  33. TAE BULK 163 (PINUS STROBUS) [Suspect]
     Active Substance: PINUS STROBUS POLLEN
     Indication: PRODUCT USED FOR UNKNOWN INDICATION
     Dosage: UNK
     Route: 058
     Dates: start: 20180924, end: 20200924

REACTIONS (5)
  - Dyspnoea [Recovering/Resolving]
  - Injection site erythema [Recovering/Resolving]
  - Injection site urticaria [Recovering/Resolving]
  - Cough [Recovering/Resolving]
  - Adverse reaction [Recovering/Resolving]

NARRATIVE: CASE EVENT DATE: 20200924
